FAERS Safety Report 8282990-2 (Version None)
Quarter: 2012Q2

REPORT INFORMATION
  Report Type: 
  Country: None (occurrence: None)
  Receive Date: 20120413
  Receipt Date: 20120409
  Transmission Date: 20120825
  Serious: Yes (Hospitalization)
  Sender: FDA-Public Use
  Company Number: US-BAYER-201020590NA

PATIENT
  Age: 27 Year
  Sex: Female
  Weight: 159.9 kg

DRUGS (19)
  1. SYNTHROID [Concomitant]
     Indication: HYPOTHYROIDISM
     Dosage: 50 ?G (DAILY DOSE), , ORAL
     Route: 048
     Dates: start: 20030101, end: 20100615
  2. NAPROSYN [Concomitant]
     Dosage: UNK
     Dates: start: 20080223
  3. FERROUS SULFATE TAB [Concomitant]
     Dosage: 325 MG, UNK
     Route: 048
     Dates: start: 20060322
  4. LEVOTHYROXINE SODIUM [Concomitant]
  5. FLUTICASONE PROPIONATE/SALMETEROL [Concomitant]
  6. FOSINOPRIL SODIUM [Concomitant]
     Indication: HYPERTENSION
     Dosage: 40 MG (DAILY DOSE), , ORAL
     Route: 048
     Dates: start: 20040331, end: 20060613
  7. BUPROPION HCL [Concomitant]
     Indication: DEPRESSION
     Dosage: DAILY AS DIRECTED
     Route: 048
     Dates: start: 20050101, end: 20100615
  8. NSAID'S [Concomitant]
     Dosage: UNK
     Dates: start: 20080311
  9. CLONAZEPAM [Concomitant]
  10. COLACE [Concomitant]
     Dosage: UNK
     Route: 048
     Dates: start: 20060322
  11. YASMIN [Suspect]
     Indication: MENSTRUATION IRREGULAR
     Route: 048
     Dates: start: 20060322, end: 20060420
  12. YASMIN [Suspect]
     Indication: MENORRHAGIA
  13. ALBUTEROL [Concomitant]
     Indication: ASTHMA
     Dosage: 90 ?G (DAILY DOSE), , RESPIRATORY
     Route: 055
  14. PRILOSEC [Concomitant]
     Dosage: UNK
     Dates: start: 20080722
  15. SINGULAIR [Concomitant]
     Indication: ASTHMA
     Dosage: 10 MG (DAILY DOSE), , ORAL
     Route: 048
     Dates: start: 20020101, end: 20100615
  16. KETOROLAC TROMETHAMINE [Concomitant]
     Dosage: 10 MG (DAILY DOSE), , ORAL
     Route: 048
     Dates: start: 20060511
  17. MONTELUKAST [Concomitant]
  18. ADVAIR DISKUS 100/50 [Concomitant]
     Dosage: 1-2 PUFFS
     Route: 055
     Dates: start: 20020101, end: 20100615
  19. RISPERDAL [Concomitant]
     Dosage: 1 MG, UNK
     Route: 048
     Dates: start: 20060303

REACTIONS (4)
  - PULMONARY EMBOLISM [None]
  - DEEP VEIN THROMBOSIS [None]
  - PAIN IN EXTREMITY [None]
  - OEDEMA PERIPHERAL [None]
